FAERS Safety Report 8688301 (Version 2)
Quarter: 2015Q1

REPORT INFORMATION
  Report Type: Report from Study
  Country: US (occurrence: US)
  Receive Date: 20120727
  Receipt Date: 20150128
  Transmission Date: 20150721
  Serious: Yes (Disabling, Other)
  Sender: FDA-Public Use
  Company Number: US-ROCHE-1092156

PATIENT
  Sex: Female
  Weight: 69.46 kg

DRUGS (12)
  1. FORADIL [Concomitant]
     Active Substance: FORMOTEROL FUMARATE
     Dosage: 2 PUFFS IN THE A.RN.
     Route: 065
  2. PREDNISONE. [Concomitant]
     Active Substance: PREDNISONE
     Route: 065
  3. AZMACORT [Concomitant]
     Active Substance: TRIAMCINOLONE ACETONIDE
     Dosage: 4 PUFFS
     Route: 065
  4. ALBUTEROL. [Concomitant]
     Active Substance: ALBUTEROL
     Dosage: EVERY 4 HOURS, NEBULIZER
     Route: 065
  5. MERIDIA [Concomitant]
     Active Substance: SIBUTRAMINE HYDROCHLORIDE
     Route: 065
  6. XOLAIR [Suspect]
     Active Substance: OMALIZUMAB
     Indication: ASTHMA
     Route: 058
  7. SINGULAIR [Concomitant]
     Active Substance: MONTELUKAST SODIUM
     Route: 065
  8. TYLENOL [Concomitant]
     Active Substance: ACETAMINOPHEN
     Dosage: PM
     Route: 065
  9. FORADIL [Concomitant]
     Active Substance: FORMOTEROL FUMARATE
     Dosage: 2 CAPSULE
     Route: 065
  10. SINGULAIR [Concomitant]
     Active Substance: MONTELUKAST SODIUM
     Route: 065
  11. PREDNISONE. [Concomitant]
     Active Substance: PREDNISONE
     Route: 065
  12. DYAZIDE [Concomitant]
     Active Substance: HYDROCHLOROTHIAZIDE\TRIAMTERENE
     Dosage: PM
     Route: 065

REACTIONS (12)
  - Dyspnoea [Recovered/Resolved]
  - Dyspnoea exertional [Recovered/Resolved]
  - Fatigue [Unknown]
  - Cough [Unknown]
  - Middle insomnia [Unknown]
  - Bronchitis [Unknown]
  - Dyspnoea [Unknown]
  - Asthenia [Unknown]
  - Joint injury [Unknown]
  - Asthma [Unknown]
  - Wheezing [Unknown]
  - General physical health deterioration [Unknown]
